FAERS Safety Report 23862725 (Version 3)
Quarter: 2024Q3

REPORT INFORMATION
  Report Type: Spontaneous
  Country: TW (occurrence: TW)
  Receive Date: 20240516
  Receipt Date: 20240712
  Transmission Date: 20241017
  Serious: No
  Sender: PFIZER
  Company Number: TW-PFIZER INC-PV202400062344

PATIENT
  Sex: Female

DRUGS (1)
  1. ENBREL [Suspect]
     Active Substance: BENZYL ALCOHOL\ETANERCEPT
     Dosage: UNK

REACTIONS (3)
  - Needle issue [Unknown]
  - Device mechanical issue [Unknown]
  - Incorrect dose administered by device [Unknown]

NARRATIVE: CASE EVENT DATE: 20240514
